FAERS Safety Report 22129523 (Version 2)
Quarter: 2024Q3

REPORT INFORMATION
  Report Type: Spontaneous
  Country: US (occurrence: None)
  Receive Date: 20230323
  Receipt Date: 20240820
  Transmission Date: 20241016
  Serious: Yes (Death, Hospitalization, Other)
  Sender: UNICHEM
  Company Number: US-Unichem Pharmaceuticals (USA) Inc-UCM202303-000314

PATIENT
  Age: 52 Year
  Sex: Male

DRUGS (1)
  1. AMIODARONE HYDROCHLORIDE [Suspect]
     Active Substance: AMIODARONE HYDROCHLORIDE
     Indication: Atrial fibrillation
     Dosage: UNKNOWN

REACTIONS (9)
  - Cardiogenic shock [Unknown]
  - Cardio-respiratory arrest [Unknown]
  - Liver function test increased [Unknown]
  - Blood creatinine increased [Unknown]
  - Haemodynamic instability [Fatal]
  - Thyrotoxic crisis [Fatal]
  - Ventricular tachycardia [Fatal]
  - Hyperthyroidism [Unknown]
  - Drug ineffective for unapproved indication [Unknown]
